FAERS Safety Report 10856874 (Version 2)
Quarter: 2015Q1

REPORT INFORMATION
  Report Type: Spontaneous
  Country: FR (occurrence: FR)
  Receive Date: 20150223
  Receipt Date: 20150305
  Transmission Date: 20150721
  Serious: Yes (Death)
  Sender: FDA-Public Use
  Company Number: FR-INTERMUNE, INC.-201502IM010122

PATIENT
  Age: 75 Year
  Sex: Male

DRUGS (7)
  1. ESBRIET [Suspect]
     Active Substance: PIRFENIDONE
     Dosage: 1602 MG
     Route: 048
  2. CORTISONE [Concomitant]
     Active Substance: CORTISONE\HYDROCORTISONE
     Indication: IDIOPATHIC PULMONARY FIBROSIS
  3. ANTIHYPERTENSIVE TREATMENT [Concomitant]
     Indication: HYPERTENSION
  4. PARIET [Concomitant]
     Active Substance: RABEPRAZOLE SODIUM
     Indication: ULCER
  5. ESBRIET [Suspect]
     Active Substance: PIRFENIDONE
     Indication: IDIOPATHIC PULMONARY FIBROSIS
     Route: 048
     Dates: start: 20140527
  6. ESBRIET [Suspect]
     Active Substance: PIRFENIDONE
     Dosage: 2403 MG
     Route: 048
  7. SPIRIVA [Concomitant]
     Active Substance: TIOTROPIUM BROMIDE MONOHYDRATE

REACTIONS (3)
  - Idiopathic pulmonary fibrosis [Fatal]
  - Carbon monoxide diffusing capacity decreased [Unknown]
  - Forced vital capacity decreased [Unknown]

NARRATIVE: CASE EVENT DATE: 201411
